FAERS Safety Report 11535875 (Version 1)
Quarter: 2015Q3

REPORT INFORMATION
  Report Type: Spontaneous
  Country: US (occurrence: US)
  Receive Date: 20150903
  Receipt Date: 20150903
  Transmission Date: 20151125
  Serious: No
  Sender: FDA-Public Use
  Company Number: US-ELI_LILLY_AND_COMPANY-US201101006088

PATIENT
  Sex: Male

DRUGS (4)
  1. BYETTA [Concomitant]
     Active Substance: EXENATIDE
  2. LANTUS [Concomitant]
     Active Substance: INSULIN GLARGINE
     Dosage: 65 U, UNKNOWN
  3. HUMALOG [Suspect]
     Active Substance: INSULIN LISPRO
     Indication: DIABETES MELLITUS
     Dosage: 25 U, 3/D
  4. HUMALOG [Suspect]
     Active Substance: INSULIN LISPRO
     Dosage: 25 U, TID

REACTIONS (4)
  - Underdose [Unknown]
  - Weight loss poor [Unknown]
  - Blood glucose increased [Unknown]
  - Back pain [Unknown]
